FAERS Safety Report 23230565 (Version 1)
Quarter: 2023Q4

REPORT INFORMATION
  Report Type: Spontaneous
  Country: US (occurrence: None)
  Receive Date: 20231124
  Receipt Date: 20231124
  Transmission Date: 20240109
  Serious: Yes (Death)
  Sender: FDA-Public Use
  Company Number: None

PATIENT
  Age: 76 Year
  Sex: Male

DRUGS (2)
  1. PIRFENIDONE [Suspect]
     Active Substance: PIRFENIDONE
     Indication: Interstitial lung disease
     Dosage: FREQUENCY : 3 TIMES A DAY;?
     Route: 048
     Dates: start: 20210419, end: 20230317
  2. APIXABAN [Suspect]
     Active Substance: APIXABAN

REACTIONS (6)
  - Cough [None]
  - Dyspnoea [None]
  - Hypotension [None]
  - Atrial fibrillation [None]
  - Cor pulmonale [None]
  - Palliative care [None]

NARRATIVE: CASE EVENT DATE: 20230317
